FAERS Safety Report 4831047-9 (Version None)
Quarter: 2005Q4

REPORT INFORMATION
  Report Type: 
  Country: None (occurrence: None)
  Receive Date: 20051115
  Receipt Date: 20051115
  Transmission Date: 20060501
  Serious: Yes (Life-Threatening)
  Sender: FDA-Public Use
  Company Number: None

PATIENT
  Sex: Female
  Weight: 58 kg

DRUGS (1)
  1. AMIODARONE IVPB D5W 100 ML 160 MG SOLN 11/08/2005 [Suspect]
     Dosage: 160 MG ONCE IVPB
     Route: 042
     Dates: start: 20051108

REACTIONS (2)
  - RESPIRATORY ARREST [None]
  - URTICARIA [None]
